FAERS Safety Report 6756350-7 (Version None)
Quarter: 2010Q2

REPORT INFORMATION
  Report Type: 
  Country: None (occurrence: None)
  Receive Date: 20100604
  Receipt Date: 20100527
  Transmission Date: 20101027
  Serious: Yes (Life-Threatening, Hospitalization)
  Sender: FDA-Public Use
  Company Number: JP-ROCHE-704400

PATIENT
  Sex: Female
  Weight: 33 kg

DRUGS (2)
  1. XELODA [Suspect]
     Indication: BREAST CANCER RECURRENT
     Route: 048
     Dates: start: 20090326, end: 20100426
  2. HERCEPTIN [Suspect]
     Indication: BREAST CANCER
     Route: 041
     Dates: start: 20100513, end: 20100513

REACTIONS (2)
  - ANAPHYLACTOID REACTION [None]
  - DYSPNOEA [None]
